FAERS Safety Report 6551753-8 (Version None)
Quarter: 2010Q1

REPORT INFORMATION
  Report Type: 
  Country: None (occurrence: None)
  Receive Date: 20100126
  Receipt Date: 20100120
  Transmission Date: 20100710
  Serious: No
  Sender: FDA-Public Use
  Company Number: US-B.I. PHARMACEUTICALS,INC./RIDGEFIELD-2010-BP-00845BP

PATIENT
  Sex: Female

DRUGS (6)
  1. SPIRIVA [Suspect]
     Indication: CHRONIC OBSTRUCTIVE PULMONARY DISEASE
     Route: 055
     Dates: start: 20040101
  2. PROVENTIL [Concomitant]
     Indication: ASTHMA
  3. SEREVENT [Concomitant]
     Indication: ASTHMA
  4. ALBUTEROL [Concomitant]
     Indication: ASTHMA
  5. LISINOPRIL [Concomitant]
     Indication: CONGENITAL ANOMALY
  6. OXYGEN [Concomitant]
     Indication: SLEEP DISORDER

REACTIONS (1)
  - DYSURIA [None]
